FAERS Safety Report 7996536-7 (Version None)
Quarter: 2011Q4

REPORT INFORMATION
  Report Type: 
  Country: None (occurrence: None)
  Receive Date: 20111221
  Receipt Date: 20111213
  Transmission Date: 20120403
  Serious: Yes (Hospitalization)
  Sender: FDA-Public Use
  Company Number: US-BIOGENIDEC-2011BI016775

PATIENT
  Age: 56 Year
  Sex: Female

DRUGS (6)
  1. TYSABRI [Suspect]
     Indication: MULTIPLE SCLEROSIS
     Route: 042
     Dates: start: 20110330, end: 20110330
  2. TYSABRI [Suspect]
     Route: 042
  3. PROVIGIL [Concomitant]
     Indication: MULTIPLE SCLEROSIS RELAPSE
     Route: 048
  4. PROZAC [Concomitant]
  5. PREDNISONE TAPER [Concomitant]
     Route: 048
  6. CYTOXAN [Concomitant]

REACTIONS (5)
  - PNEUMONIA [None]
  - POST LUMBAR PUNCTURE SYNDROME [None]
  - CENTRAL NERVOUS SYSTEM LYMPHOMA [None]
  - INFECTION [None]
  - MULTIPLE SCLEROSIS RELAPSE [None]
